FAERS Safety Report 20304584 (Version 3)
Quarter: 2025Q2

REPORT INFORMATION
  Report Type: Spontaneous
  Country: PL (occurrence: PL)
  Receive Date: 20220106
  Receipt Date: 20250513
  Transmission Date: 20250717
  Serious: Yes (Other)
  Sender: MYLAN
  Company Number: PL-SUN PHARMACEUTICAL INDUSTRIES LTD-2021RR-321437

PATIENT
  Age: 42 Year
  Sex: Female

DRUGS (28)
  1. OXALIPLATIN [Suspect]
     Active Substance: OXALIPLATIN
     Indication: Pancreatic carcinoma
  2. OXALIPLATIN [Suspect]
     Active Substance: OXALIPLATIN
     Route: 065
  3. OXALIPLATIN [Suspect]
     Active Substance: OXALIPLATIN
     Route: 065
  4. OXALIPLATIN [Suspect]
     Active Substance: OXALIPLATIN
  5. IRINOTECAN [Suspect]
     Active Substance: IRINOTECAN
     Indication: Pancreatic carcinoma
  6. IRINOTECAN [Suspect]
     Active Substance: IRINOTECAN
     Route: 065
  7. IRINOTECAN [Suspect]
     Active Substance: IRINOTECAN
     Route: 065
  8. IRINOTECAN [Suspect]
     Active Substance: IRINOTECAN
  9. FLUOROURACIL [Suspect]
     Active Substance: FLUOROURACIL
     Indication: Pancreatic carcinoma
  10. FLUOROURACIL [Suspect]
     Active Substance: FLUOROURACIL
     Route: 065
  11. FLUOROURACIL [Suspect]
     Active Substance: FLUOROURACIL
     Route: 065
  12. FLUOROURACIL [Suspect]
     Active Substance: FLUOROURACIL
  13. LEUCOVORIN CALCIUM [Suspect]
     Active Substance: LEUCOVORIN CALCIUM
     Indication: Pancreatic carcinoma
  14. LEUCOVORIN CALCIUM [Suspect]
     Active Substance: LEUCOVORIN CALCIUM
     Route: 065
  15. LEUCOVORIN CALCIUM [Suspect]
     Active Substance: LEUCOVORIN CALCIUM
     Route: 065
  16. LEUCOVORIN CALCIUM [Suspect]
     Active Substance: LEUCOVORIN CALCIUM
  17. NETUPITANT [Concomitant]
     Active Substance: NETUPITANT
     Indication: Prophylaxis of nausea and vomiting
  18. NETUPITANT [Concomitant]
     Active Substance: NETUPITANT
     Route: 065
  19. NETUPITANT [Concomitant]
     Active Substance: NETUPITANT
     Route: 065
  20. NETUPITANT [Concomitant]
     Active Substance: NETUPITANT
  21. PALONOSETRON [Concomitant]
     Active Substance: PALONOSETRON
     Indication: Prophylaxis of nausea and vomiting
  22. PALONOSETRON [Concomitant]
     Active Substance: PALONOSETRON
     Route: 065
  23. PALONOSETRON [Concomitant]
     Active Substance: PALONOSETRON
     Route: 065
  24. PALONOSETRON [Concomitant]
     Active Substance: PALONOSETRON
  25. CITALOPRAM [Concomitant]
     Active Substance: CITALOPRAM
     Indication: Antidepressant therapy
  26. CITALOPRAM [Concomitant]
     Active Substance: CITALOPRAM
     Route: 065
  27. CITALOPRAM [Concomitant]
     Active Substance: CITALOPRAM
     Route: 065
  28. CITALOPRAM [Concomitant]
     Active Substance: CITALOPRAM

REACTIONS (8)
  - Neutropenia [Unknown]
  - Toxicity to various agents [Unknown]
  - Drug ineffective [Unknown]
  - Decreased appetite [Unknown]
  - Vomiting [Unknown]
  - Sitophobia [Unknown]
  - Mixed anxiety and depressive disorder [Recovering/Resolving]
  - Off label use [Unknown]
